FAERS Safety Report 5871640-8 (Version None)
Quarter: 2008Q3

REPORT INFORMATION
  Report Type: 
  Country: None (occurrence: None)
  Receive Date: 20080904
  Receipt Date: 20080904
  Transmission Date: 20090109
  Serious: Yes (Other)
  Sender: FDA-Public Use
  Company Number: None

PATIENT
  Sex: Female
  Weight: 52.6173 kg

DRUGS (2)
  1. AVON SOLUTIONS PROTECTING SPF/FPS 30 (LOTION) [Suspect]
     Indication: PROPHYLAXIS AGAINST SOLAR RADIATION
     Dosage: TOPICAL LOTION FACE + NECK Q DAY TOPICAL
     Route: 061
     Dates: start: 20080401, end: 20080701
  2. AVON LOTION SKIN SO SOFT SUNSCREEN SPF 30 [Suspect]
     Dosage: TOPICAL LOTION ARMS + LEGS TOPICAL
     Route: 061
     Dates: start: 20080401, end: 20080701

REACTIONS (4)
  - DYSPNOEA [None]
  - EYE PRURITUS [None]
  - PHARYNGEAL OEDEMA [None]
  - RASH [None]
